FAERS Safety Report 11934349 (Version 3)
Quarter: 2016Q1

REPORT INFORMATION
  Report Type: Spontaneous
  Country: DE (occurrence: JP)
  Receive Date: 20160121
  Receipt Date: 20160203
  Transmission Date: 20160526
  Serious: Yes (Other)
  Sender: FDA-Public Use
  Company Number: JP-BRACCO-009790

PATIENT
  Sex: Male

DRUGS (2)
  1. IOHEXOL [Suspect]
     Active Substance: IOHEXOL
     Indication: CORONARY ANGIOPLASTY
  2. IOPAMIDOL [Suspect]
     Active Substance: IOPAMIDOL
     Indication: CORONARY ANGIOPLASTY

REACTIONS (2)
  - Stevens-Johnson syndrome [Recovering/Resolving]
  - Contrast media allergy [Recovering/Resolving]
